FAERS Safety Report 4596248-6 (Version None)
Quarter: 2005Q1

REPORT INFORMATION
  Report Type: 
  Country: None (occurrence: None)
  Receive Date: 20050225
  Receipt Date: 20050221
  Transmission Date: 20050727
  Serious: Yes (Life-Threatening)
  Sender: FDA-Public Use
  Company Number: 2004AP06375

PATIENT
  Age: 75 Year
  Sex: Female
  Weight: 65 kg

DRUGS (11)
  1. DIPRIVAN [Suspect]
     Indication: SEDATION
     Dosage: 2 ML PU
     Dates: start: 20041215
  2. DIPRIVAN [Suspect]
     Indication: SEDATION
     Dosage: 3 ML PU
     Dates: start: 20041215
  3. DIPRIVAN [Suspect]
     Indication: SEDATION
     Dosage: 5 ML/HR IVD
     Route: 041
     Dates: start: 20041215
  4. DIPRIVAN [Suspect]
     Indication: SEDATION
     Dosage: 3 ML/HR IVD
     Route: 041
     Dates: start: 20041215
  5. HERBESSER ^DELTA^ [Suspect]
     Dosage: 2 ML PU
     Dates: start: 20041215
  6. VEEN D [Concomitant]
  7. TRANSAMIN [Concomitant]
  8. ADONA [Concomitant]
  9. VITACIMIN [Concomitant]
  10. GASTER [Concomitant]
  11. SOLDEM 3A [Concomitant]

REACTIONS (10)
  - BLOOD PRESSURE INCREASED [None]
  - BRADYCARDIA [None]
  - CARDIAC ARREST [None]
  - CONFUSIONAL STATE [None]
  - DELIRIUM [None]
  - DISEASE RECURRENCE [None]
  - DRUG INEFFECTIVE [None]
  - RESPIRATORY ARREST [None]
  - RESPIRATORY DEPRESSION [None]
  - RUPTURED CEREBRAL ANEURYSM [None]
